FAERS Safety Report 18869119 (Version 1)
Quarter: 2021Q1

REPORT INFORMATION
  Report Type: Spontaneous
  Country: US (occurrence: US)
  Receive Date: 20210209
  Receipt Date: 20210209
  Transmission Date: 20210420
  Serious: Yes (Other)
  Sender: FDA-Public Use
  Company Number: US-TEVA-2021-US-1876233

PATIENT

DRUGS (9)
  1. LETROZOLE. [Suspect]
     Active Substance: LETROZOLE
     Route: 065
  2. CENTRUM [Concomitant]
     Active Substance: VITAMINS
     Dosage: .4?300?250
  3. SODIUM BICARBONATE. [Concomitant]
     Active Substance: SODIUM BICARBONATE
  4. PRESERVISION AREDS [Concomitant]
     Active Substance: MINERALS\VITAMINS
  5. CALCIUM 500 (1250) [Concomitant]
  6. NALTREXONE HCL [Concomitant]
     Active Substance: NALTREXONE HYDROCHLORIDE
  7. ARMOUR THYROID [Concomitant]
     Active Substance: THYROID, PORCINE
  8. VITAMIN D2 [Concomitant]
     Active Substance: ERGOCALCIFEROL
  9. IBRANCE [Suspect]
     Active Substance: PALBOCICLIB
     Indication: BREAST CANCER FEMALE
     Dosage: 1 DAILY FOR 21 DAYS
     Route: 048

REACTIONS (5)
  - Neutrophil count decreased [Unknown]
  - Anaemia [Unknown]
  - Hot flush [Recovering/Resolving]
  - Hypothyroidism [Unknown]
  - Irritability [Unknown]
